FAERS Safety Report 5009798-5 (Version None)
Quarter: 2006Q2

REPORT INFORMATION
  Report Type: 
  Country: None (occurrence: None)
  Receive Date: 20060522
  Receipt Date: 20060505
  Transmission Date: 20061013
  Serious: Yes (Life-Threatening)
  Sender: FDA-Public Use
  Company Number: 14025

PATIENT
  Age: 59 Year
  Sex: Male
  Weight: 95 kg

DRUGS (7)
  1. AMIODARONE [Suspect]
     Indication: ATRIAL FIBRILLATION
     Dosage: 300 MG ONCE IV
     Route: 042
     Dates: start: 20060404, end: 20060404
  2. AMIODARONE [Suspect]
     Indication: ATRIAL FIBRILLATION
     Dosage: 900 MG TOTAL IV
     Route: 042
     Dates: start: 20060404, end: 20060405
  3. ATROVENT [Concomitant]
  4. COMBIVENT [Concomitant]
  5. INDOMETHACIN [Concomitant]
  6. FUROSEMIDE [Concomitant]
  7. LOSARTAN POTASSIUM [Concomitant]

REACTIONS (1)
  - URTICARIA [None]
